FAERS Safety Report 8197472-6 (Version None)
Quarter: 2012Q1

REPORT INFORMATION
  Report Type: 
  Country: None (occurrence: None)
  Receive Date: 20120309
  Receipt Date: 20120305
  Transmission Date: 20120608
  Serious: Yes (Hospitalization)
  Sender: FDA-Public Use
  Company Number: GB-ROCHE-1030599

PATIENT
  Sex: Female
  Weight: 62 kg

DRUGS (4)
  1. METHOTREXATE [Concomitant]
     Dates: start: 20081029
  2. STEROIDS - UNKNOWN TYPE [Concomitant]
  3. AZULFIDINE [Concomitant]
  4. MABTHERA [Suspect]
     Indication: RHEUMATOID ARTHRITIS
     Dates: start: 20090625

REACTIONS (2)
  - ABDOMINAL PAIN [None]
  - APPENDICECTOMY [None]
